FAERS Safety Report 12076405 (Version 2)
Quarter: 2016Q1

REPORT INFORMATION
  Report Type: Spontaneous
  Country: FR (occurrence: FR)
  Receive Date: 20160215
  Receipt Date: 20160307
  Transmission Date: 20160526
  Serious: Yes (Hospitalization)
  Sender: FDA-Public Use
  Company Number: FR-ACCORD-037923

PATIENT
  Age: 68 Year
  Sex: Male
  Weight: 94 kg

DRUGS (13)
  1. METFORMIN [Concomitant]
     Active Substance: METFORMIN HYDROCHLORIDE
     Indication: TYPE 2 DIABETES MELLITUS
     Dosage: 1000 MG TWICE A DAY VIA ORAL ROUTE AS LONG-TERM TREATMENT
     Route: 048
  2. SOLUPRED [Concomitant]
     Active Substance: PREDNISOLONE
     Route: 048
  3. SKENAN [Concomitant]
     Active Substance: MORPHINE SULFATE
     Route: 048
     Dates: start: 20151007
  4. METHYLPREDNISOLONE MYLAN [Concomitant]
     Active Substance: METHYLPREDNISOLONE
     Dosage: IM-IV,
     Route: 042
     Dates: start: 20151002
  5. HEMI-DAONIL [Concomitant]
     Active Substance: GLYBURIDE
     Route: 048
  6. INEXIUM [Concomitant]
     Active Substance: ESOMEPRAZOLE
  7. PRIMPERAN [Concomitant]
     Active Substance: METOCLOPRAMIDE HYDROCHLORIDE
     Indication: PROPHYLAXIS
     Dosage: 10 MG IN A SINGLE INTAKE
     Route: 048
     Dates: start: 20151002
  8. GLYCEROL\PARAFFIN [Concomitant]
     Active Substance: GLYCERIN\PARAFFIN
  9. ACTISKENAN [Concomitant]
     Active Substance: MORPHINE SULFATE
     Dosage: AS NECESSARY
     Route: 048
  10. INIPOMP [Concomitant]
     Active Substance: PANTOPRAZOLE SODIUM
     Dosage: LONG-TERM TREATMENT
     Route: 048
  11. ONDANSETRON ACCORD [Concomitant]
     Active Substance: ONDANSETRON
     Indication: PROPHYLAXIS
     Dosage: 2 MG/ML, SOLUTION INJECTABLE
     Route: 042
     Dates: start: 20151002
  12. DOCETAXEL ACCORD [Suspect]
     Active Substance: DOCETAXEL
     Indication: PROSTATE CANCER METASTATIC
     Dosage: STRENGTH: 160 MG/8ML, DOSE : 75 MG/M2 IN 21 DAYS, LAST RECEIVED ON 02-OCT-2015, DURATION 85 DAYS
     Route: 042
     Dates: start: 20150710
  13. COVERSYL [Concomitant]
     Active Substance: PERINDOPRIL
     Route: 048

REACTIONS (5)
  - Scleroderma [Unknown]
  - Dermatitis bullous [Recovered/Resolved]
  - Skin toxicity [Recovered/Resolved]
  - Onycholysis [Recovered/Resolved]
  - Fluid retention [Recovering/Resolving]

NARRATIVE: CASE EVENT DATE: 20151023
